FAERS Safety Report 8130593-2 (Version None)
Quarter: 2012Q1

REPORT INFORMATION
  Report Type: 
  Country: None (occurrence: None)
  Receive Date: 20120212
  Receipt Date: 20120130
  Transmission Date: 20120608
  Serious: Yes (Death, Other)
  Sender: FDA-Public Use
  Company Number: GB-BRISTOL-MYERS SQUIBB COMPANY-16393712

PATIENT
  Age: 57 Year
  Sex: Female

DRUGS (2)
  1. PACLITAXEL [Suspect]
     Indication: OVARIAN EPITHELIAL CANCER
  2. CARBOPLATIN [Suspect]
     Indication: OVARIAN EPITHELIAL CANCER

REACTIONS (2)
  - DEATH [None]
  - NEUROPATHY PERIPHERAL [None]
